FAERS Safety Report 18207725 (Version 5)
Quarter: 2020Q4

REPORT INFORMATION
  Report Type: Spontaneous
  Country: US (occurrence: US)
  Receive Date: 20200828
  Receipt Date: 20201231
  Transmission Date: 20210113
  Serious: No
  Sender: FDA-Public Use
  Company Number: US-PFIZER INC-2020334228

PATIENT
  Age: 58 Year
  Sex: Female

DRUGS (3)
  1. IBRANCE [Suspect]
     Active Substance: PALBOCICLIB
     Dosage: 125 MG
     Dates: start: 20200824
  2. IBRANCE [Suspect]
     Active Substance: PALBOCICLIB
     Dosage: UNK, UNK (75 MG TABLET)
     Dates: start: 20200820, end: 20201225
  3. IBRANCE [Suspect]
     Active Substance: PALBOCICLIB
     Dosage: UNK, UNK (100 MG TABLET)
     Dates: start: 20200924

REACTIONS (5)
  - Diarrhoea [Unknown]
  - Neutrophil count decreased [Unknown]
  - Neoplasm progression [Unknown]
  - Stomatitis [Unknown]
  - Fatigue [Unknown]

NARRATIVE: CASE EVENT DATE: 2020
